FAERS Safety Report 5273112-0 (Version None)
Quarter: 2007Q1

REPORT INFORMATION
  Report Type: 
  Country: None (occurrence: None)
  Receive Date: 20070322
  Receipt Date: 20070312
  Transmission Date: 20070707
  Serious: Yes (Death)
  Sender: FDA-Public Use
  Company Number: US-SANOFI-SYNTHELABO-A03200702020

PATIENT
  Sex: Male
  Weight: 82.6 kg

DRUGS (4)
  1. HYDROCHLOROTHIAZIDE [Concomitant]
     Indication: DRUG USE FOR UNKNOWN INDICATION
     Route: 065
  2. PROPRANOLOL [Concomitant]
     Indication: DRUG USE FOR UNKNOWN INDICATION
     Route: 065
  3. AMBIEN [Suspect]
     Indication: INSOMNIA
     Route: 048
     Dates: start: 20010525
  4. ARICEPT [Concomitant]
     Indication: DRUG USE FOR UNKNOWN INDICATION
     Route: 065

REACTIONS (4)
  - AMNESIA [None]
  - CONFUSIONAL STATE [None]
  - DROWNING [None]
  - SLEEP WALKING [None]
